FAERS Safety Report 15469561 (Version 1)
Quarter: 2018Q4

REPORT INFORMATION
  Report Type: Spontaneous
  Country: DE (occurrence: DE)
  Receive Date: 20181005
  Receipt Date: 20181005
  Transmission Date: 20190205
  Serious: Yes (Hospitalization, Other)
  Sender: FDA-Public Use
  Company Number: DE-PFIZER INC-2018396278

PATIENT
  Age: 83 Year
  Sex: Female
  Weight: 48 kg

DRUGS (12)
  1. GABAPENTIN. [Suspect]
     Active Substance: GABAPENTIN
     Indication: NEURALGIA
     Dosage: 500
     Route: 048
     Dates: start: 20180730, end: 2018
  2. IOD [IODINE] [Suspect]
     Active Substance: IODINE
     Dosage: UNK
  3. NAROPIN [Suspect]
     Active Substance: ROPIVACAINE HYDROCHLORIDE
     Indication: PAIN IN EXTREMITY
     Dosage: TRIAM UND NAROPIN 20 INJ 1 X O,5 AND 2MG 10 ML
     Route: 008
     Dates: start: 20180622
  4. LEVETIRACETAM. [Suspect]
     Active Substance: LEVETIRACETAM
     Indication: CEREBRAL HAEMORRHAGE
     Dosage: 500-0-500, EVERY 12 HRS
     Route: 042
     Dates: start: 20180702, end: 20180709
  5. LEVETIRACETAM. [Suspect]
     Active Substance: LEVETIRACETAM
     Indication: EPILEPSY
     Dosage: 500-0-500, EVERY 12 HRS
     Route: 048
     Dates: start: 20180816, end: 201808
  6. LEVETIRACETAM. [Suspect]
     Active Substance: LEVETIRACETAM
     Dosage: TAPERING OFF
     Route: 048
     Dates: start: 20180829, end: 2018
  7. FORMIC ACID [Concomitant]
     Active Substance: FORMIC ACID
     Dosage: 1  DF, 1X/DAY, 1 AMPOULE/1XDAY
     Route: 030
     Dates: start: 20180625
  8. LORAZEPAM. [Suspect]
     Active Substance: LORAZEPAM
     Dosage: UNK
  9. TRIAM [TRIAMCINOLONE] [Suspect]
     Active Substance: TRIAMCINOLONE
     Indication: SCIATICA
     Dosage: TRIAM UND NAROPIN 20 INJ 1 X O,5 AND 2MG 10 ML
     Route: 008
     Dates: start: 20180622
  10. NOVALGIN (METAMIZOLE SODIUM) [Suspect]
     Active Substance: METAMIZOLE SODIUM
     Indication: SCIATICA
     Dosage: UNKNOWN
     Route: 042
     Dates: start: 20180628
  11. FORMIC ACID [Concomitant]
     Active Substance: FORMIC ACID
     Indication: SCIATICA
     Dosage: 1 DF, 1X/DAY, 1 AMPOULE A DAY
     Route: 014
     Dates: start: 20180625
  12. COTRIM FORTE [Suspect]
     Active Substance: SULFAMETHOXAZOLE\TRIMETHOPRIM
     Indication: CYSTITIS NONINFECTIVE
     Dosage: UNK
     Route: 048
     Dates: start: 20180811, end: 20180816

REACTIONS (9)
  - Cerebral haemorrhage [Recovered/Resolved with Sequelae]
  - Cerebral haemorrhage [Recovered/Resolved with Sequelae]
  - Epilepsy [Unknown]
  - Platelet count decreased [Unknown]
  - Dysphagia [Recovering/Resolving]
  - Loss of consciousness [Recovering/Resolving]
  - Somnolence [Unknown]
  - Gamma-glutamyltransferase increased [Unknown]
  - Sopor [Unknown]

NARRATIVE: CASE EVENT DATE: 20180622
